FAERS Safety Report 16199039 (Version 1)
Quarter: 2019Q2

REPORT INFORMATION
  Report Type: Spontaneous
  Country: NL (occurrence: NL)
  Receive Date: 20190415
  Receipt Date: 20190415
  Transmission Date: 20190711
  Serious: Yes (Other)
  Sender: FDA-Public Use
  Company Number: NL-MYLANLABS-2019M1035030

PATIENT
  Age: 61 Year
  Sex: Male
  Weight: 96 kg

DRUGS (3)
  1. TAMSULOSINE                        /01280301/ [Concomitant]
     Active Substance: TAMSULOSIN
     Dosage: 1 MAAL DAAGS
  2. PREDNISOLON                        /00016201/ [Concomitant]
     Active Substance: PREDNISOLONE
     Dosage: 1 MAAL DAAGS
  3. MIRTAZAPINE MYLAN [Suspect]
     Active Substance: MIRTAZAPINE
     Indication: INSOMNIA
     Dosage: 7,5 MG PER DAG VOOR HET SLAPEN
     Route: 048
     Dates: start: 20181102, end: 20181130

REACTIONS (7)
  - Suicidal ideation [Recovered/Resolved]
  - Disturbance in attention [Recovered/Resolved]
  - Constipation [Not Recovered/Not Resolved]
  - Depressed mood [Recovered/Resolved]
  - Nightmare [Recovered/Resolved]
  - Therapeutic response unexpected [Not Recovered/Not Resolved]
  - Somnolence [Recovered/Resolved]

NARRATIVE: CASE EVENT DATE: 20181102
